FAERS Safety Report 4380220-5 (Version None)
Quarter: 2004Q2

REPORT INFORMATION
  Report Type: 
  Country: None (occurrence: None)
  Receive Date: 20040616
  Receipt Date: 20040616
  Transmission Date: 20050107
  Serious: Yes (Hospitalization)
  Sender: FDA-Public Use
  Company Number: None

PATIENT
  Age: 67 Year
  Sex: Female
  Weight: 65 kg

DRUGS (2)
  1. CYTOXAN [Suspect]
     Indication: COLON CANCER
     Dosage: 50 MG EVERYDAY ORAL
     Route: 048
     Dates: start: 20031001, end: 20040602
  2. CELEBREX [Suspect]
     Dosage: 800 MG EVERYDAY ORAL
     Route: 048
     Dates: start: 20031001, end: 20040602

REACTIONS (2)
  - INSOMNIA [None]
  - SMALL INTESTINAL OBSTRUCTION [None]
